FAERS Safety Report 20828923 (Version 1)
Quarter: 2022Q2

REPORT INFORMATION
  Report Type: Spontaneous
  Country: US (occurrence: US)
  Receive Date: 20220513
  Receipt Date: 20220513
  Transmission Date: 20220721
  Serious: No
  Sender: FDA-Public Use
  Company Number: US-SA-SAC20220511000839

PATIENT
  Sex: Female

DRUGS (1)
  1. DUPIXENT [Suspect]
     Active Substance: DUPILUMAB
     Indication: Dermatitis atopic
     Dosage: 300 MG, QOW
     Route: 058
     Dates: start: 20200303

REACTIONS (9)
  - Feeling jittery [Unknown]
  - Dizziness [Unknown]
  - Cold sweat [Unknown]
  - Nausea [Unknown]
  - Vomiting [Unknown]
  - Nasopharyngitis [Unknown]
  - Eye irritation [Unknown]
  - Oral herpes [Unknown]
  - Dermatitis atopic [Unknown]
